FAERS Safety Report 8368344-9 (Version None)
Quarter: 2012Q2

REPORT INFORMATION
  Report Type: 
  Country: None (occurrence: None)
  Receive Date: 20120517
  Receipt Date: 20120509
  Transmission Date: 20120825
  Serious: Yes (Other)
  Sender: FDA-Public Use
  Company Number: BR-ELI_LILLY_AND_COMPANY-BR201205003458

PATIENT
  Sex: Female
  Weight: 67 kg

DRUGS (3)
  1. RENAGEL [Concomitant]
     Dosage: UNK, QD
     Route: 065
  2. HEMAX                              /00928302/ [Concomitant]
     Dosage: UNK, 3/W
     Route: 065
  3. FORTEO [Suspect]
     Indication: OSTEOPOROSIS
     Dosage: UNK, UNKNOWN
     Route: 058
     Dates: start: 20120201

REACTIONS (3)
  - VEIN DISORDER [None]
  - TETANY [None]
  - PARATHYROID GLAND OPERATION [None]
